FAERS Safety Report 5737407-6 (Version None)
Quarter: 2008Q2

REPORT INFORMATION
  Report Type: 
  Country: None (occurrence: None)
  Receive Date: 20080514
  Receipt Date: 20080205
  Transmission Date: 20081010
  Serious: No
  Sender: FDA-Public Use
  Company Number: US-BRISTOL-MYERS SQUIBB COMPANY-14067557

PATIENT

DRUGS (1)
  1. IXEMPRA KIT [Suspect]

REACTIONS (4)
  - ARTHRALGIA [None]
  - FATIGUE [None]
  - MYALGIA [None]
  - NAUSEA [None]
